FAERS Safety Report 18954112 (Version 6)
Quarter: 2025Q1

REPORT INFORMATION
  Report Type: Report from Study
  Country: JP (occurrence: JP)
  Receive Date: 20210301
  Receipt Date: 20250319
  Transmission Date: 20250408
  Serious: Yes (Hospitalization, Other)
  Sender: GLAXOSMITHKLINE
  Company Number: JP-GSKJP-JP2021JPN053446AA

PATIENT

DRUGS (48)
  1. MEPOLIZUMAB [Suspect]
     Active Substance: MEPOLIZUMAB
     Indication: Eosinophilic granulomatosis with polyangiitis
     Dosage: 300 MG, Q4W
     Dates: start: 20181113, end: 20190319
  2. MEPOLIZUMAB [Suspect]
     Active Substance: MEPOLIZUMAB
     Dosage: 300 MG, Q5W
     Dates: start: 20190424, end: 20190424
  3. MEPOLIZUMAB [Suspect]
     Active Substance: MEPOLIZUMAB
     Dosage: 300 MG, Q4W
     Dates: start: 20190521, end: 20191210
  4. MEPOLIZUMAB [Suspect]
     Active Substance: MEPOLIZUMAB
     Dosage: 200 MG, Q4W
     Dates: start: 20200107, end: 20200414
  5. MEPOLIZUMAB [Suspect]
     Active Substance: MEPOLIZUMAB
     Dates: start: 20200623, end: 20200623
  6. MEPOLIZUMAB [Suspect]
     Active Substance: MEPOLIZUMAB
     Dosage: 200 MG, Q4W
     Dates: start: 20200728
  7. SERETIDE [Suspect]
     Active Substance: FLUTICASONE PROPIONATE\SALMETEROL XINAFOATE
     Indication: Eosinophilic granulomatosis with polyangiitis
     Dosage: 500 ?G, 1D, INCREASED TO 1-0-2, (250) 1-0-1
     Route: 055
     Dates: start: 2016
  8. SERETIDE [Suspect]
     Active Substance: FLUTICASONE PROPIONATE\SALMETEROL XINAFOATE
     Indication: Asthma
  9. PREDNISOLONE [Suspect]
     Active Substance: PREDNISOLONE
     Indication: Eosinophilic granulomatosis with polyangiitis
     Dates: start: 201710
  10. PREDNISOLONE [Suspect]
     Active Substance: PREDNISOLONE
     Indication: Prophylaxis
  11. PREDNISOLONE [Suspect]
     Active Substance: PREDNISOLONE
  12. PREDNISOLONE [Suspect]
     Active Substance: PREDNISOLONE
  13. PREDNISOLONE [Suspect]
     Active Substance: PREDNISOLONE
     Route: 048
     Dates: end: 20181022
  14. PREDNISOLONE [Suspect]
     Active Substance: PREDNISOLONE
     Route: 048
     Dates: start: 20181023, end: 20181106
  15. PREDNISOLONE [Suspect]
     Active Substance: PREDNISOLONE
     Route: 048
     Dates: start: 20181107, end: 20181112
  16. PREDNISOLONE [Suspect]
     Active Substance: PREDNISOLONE
     Route: 048
     Dates: start: 20181113, end: 20181217
  17. PREDNISOLONE [Suspect]
     Active Substance: PREDNISOLONE
     Route: 048
     Dates: start: 20181218, end: 20190114
  18. PREDNISOLONE [Suspect]
     Active Substance: PREDNISOLONE
     Route: 048
     Dates: start: 20190115, end: 20190211
  19. PREDNISOLONE [Suspect]
     Active Substance: PREDNISOLONE
     Route: 048
     Dates: start: 20190212, end: 20190318
  20. PREDNISOLONE [Suspect]
     Active Substance: PREDNISOLONE
     Route: 048
     Dates: start: 20190319, end: 20190624
  21. PREDNISOLONE [Suspect]
     Active Substance: PREDNISOLONE
     Route: 048
     Dates: start: 20190625, end: 20190708
  22. PREDNISOLONE [Suspect]
     Active Substance: PREDNISOLONE
     Route: 048
     Dates: start: 20190709, end: 20190711
  23. PREDNISOLONE [Suspect]
     Active Substance: PREDNISOLONE
     Route: 048
     Dates: start: 20190712, end: 20190716
  24. PREDNISOLONE [Suspect]
     Active Substance: PREDNISOLONE
     Route: 048
     Dates: start: 20190717, end: 20191111
  25. PREDNISOLONE [Suspect]
     Active Substance: PREDNISOLONE
     Route: 048
     Dates: start: 20191112, end: 20200727
  26. PREDNISOLONE [Suspect]
     Active Substance: PREDNISOLONE
     Route: 048
     Dates: start: 20200728
  27. FLUTIFORM [Concomitant]
     Active Substance: FLUTIFORM
     Indication: Eosinophilic granulomatosis with polyangiitis
     Dosage: 500 ?G, 1D
     Route: 055
     Dates: start: 20190820
  28. URSODIOL [Concomitant]
     Active Substance: URSODIOL
  29. OLOPATADINE [Concomitant]
     Active Substance: OLOPATADINE
  30. ALFACALCIDOL [Concomitant]
     Active Substance: ALFACALCIDOL
  31. CILNIDIPINE [Concomitant]
     Active Substance: CILNIDIPINE
  32. SPIRONOLACTONE [Concomitant]
     Active Substance: SPIRONOLACTONE
  33. SULFAMETHOXAZOLE\TRIMETHOPRIM [Concomitant]
     Active Substance: SULFAMETHOXAZOLE\TRIMETHOPRIM
     Indication: Antifungal prophylaxis
  34. FUROSEMIDE [Concomitant]
     Active Substance: FUROSEMIDE
  35. RABEPRAZOLE [Concomitant]
     Active Substance: RABEPRAZOLE
     Indication: Prophylaxis
  36. ROSUVASTATIN [Concomitant]
     Active Substance: ROSUVASTATIN
  37. TOLVAPTAN [Concomitant]
     Active Substance: TOLVAPTAN
  38. CARBOCYSTEINE [Concomitant]
     Active Substance: CARBOCYSTEINE
     Indication: Prophylaxis
  39. ZOLPIDEM [Concomitant]
     Active Substance: ZOLPIDEM TARTRATE
  40. KETOPROFEN [Concomitant]
     Active Substance: KETOPROFEN
  41. DICLOFENAC [Concomitant]
     Active Substance: DICLOFENAC
  42. PREGABALIN [Concomitant]
     Active Substance: PREGABALIN
     Indication: Eosinophilic granulomatosis with polyangiitis
  43. DENOSUMAB [Concomitant]
     Active Substance: DENOSUMAB
  44. SAMSCA [Concomitant]
     Active Substance: TOLVAPTAN
  45. SULFAMETHOXAZOLE\TRIMETHOPRIM [Concomitant]
     Active Substance: SULFAMETHOXAZOLE\TRIMETHOPRIM
     Indication: Antifungal prophylaxis
  46. LYRICA [Concomitant]
     Active Substance: PREGABALIN
     Indication: Eosinophilic granulomatosis with polyangiitis
  47. Calfina [Concomitant]
  48. MISOPROSTOL [Concomitant]
     Active Substance: MISOPROSTOL
     Indication: Prophylaxis against gastrointestinal ulcer

REACTIONS (10)
  - Urinary tract infection [Recovering/Resolving]
  - Septic shock [Recovering/Resolving]
  - Pneumonia [Recovering/Resolving]
  - Asthma [Recovering/Resolving]
  - Eczema [Recovering/Resolving]
  - Eczema [Recovering/Resolving]
  - Inappropriate schedule of product administration [Unknown]
  - Prescribed underdose [Unknown]
  - Social problem [Unknown]
  - Off label use [Unknown]

NARRATIVE: CASE EVENT DATE: 20190625
